FAERS Safety Report 8179836-X (Version None)
Quarter: 2012Q1

REPORT INFORMATION
  Report Type: 
  Country: None (occurrence: None)
  Receive Date: 20120302
  Receipt Date: 20120228
  Transmission Date: 20120608
  Serious: Yes (Hospitalization)
  Sender: FDA-Public Use
  Company Number: US-CELGENEUS-163-21880-12023137

PATIENT
  Sex: Male

DRUGS (10)
  1. ASPIRIN [Concomitant]
     Route: 065
  2. GLYBURIDE [Concomitant]
     Route: 065
  3. REVLIMID [Suspect]
     Indication: MULTIPLE MYELOMA
     Dosage: 10 MILLIGRAM
     Route: 048
     Dates: start: 20110818
  4. ACYCLOVIR [Concomitant]
     Route: 065
  5. BENICAR [Concomitant]
     Route: 065
  6. LEVEMIR [Concomitant]
     Route: 065
  7. DILAUDID [Concomitant]
     Route: 065
  8. MS CONTIN [Concomitant]
     Route: 065
  9. REVLIMID [Suspect]
     Dosage: 5 MILLIGRAM
     Route: 048
     Dates: start: 20111101
  10. DEXAMETHASONE [Concomitant]
     Route: 065

REACTIONS (1)
  - RENAL DISORDER [None]
